FAERS Safety Report 25667425 (Version 2)
Quarter: 2025Q3

REPORT INFORMATION
  Report Type: Report from Study
  Country: EU (occurrence: EU)
  Receive Date: 20250811
  Receipt Date: 20250826
  Transmission Date: 20251021
  Serious: No
  Sender: SANOFI AVENTIS
  Company Number: EU-SA-2017SA007916

PATIENT
  Age: 47 Year
  Sex: Male

DRUGS (1)
  1. ALEMTUZUMAB [Suspect]
     Active Substance: ALEMTUZUMAB
     Indication: Relapsing multiple sclerosis
     Dosage: 12 MG,QD
     Route: 041
     Dates: start: 20161003, end: 20161007

REACTIONS (4)
  - Lymphopenia [Not Recovered/Not Resolved]
  - Cytopenia [Recovered/Resolved]
  - Urinary tract infection [Recovered/Resolved]
  - Urinary tract infection [Not Recovered/Not Resolved]

NARRATIVE: CASE EVENT DATE: 20161007
